FAERS Safety Report 11890195 (Version 4)
Quarter: 2016Q3

REPORT INFORMATION
  Report Type: Report from Study
  Country: US (occurrence: US)
  Receive Date: 20160105
  Receipt Date: 20160728
  Transmission Date: 20161109
  Serious: Yes (Death, Hospitalization)
  Sender: FDA-Public Use
  Company Number: US-EISAI MEDICAL RESEARCH-EC-2015-007673

PATIENT
  Age: 61 Year
  Sex: Female
  Weight: 46.7 kg

DRUGS (20)
  1. DEXAMETHASONE. [Concomitant]
     Active Substance: DEXAMETHASONE
  2. LEVOTHYROXINE SODIUM. [Concomitant]
     Active Substance: LEVOTHYROXINE SODIUM
  3. MULTIVITAMINS [Concomitant]
     Active Substance: VITAMINS
  4. OXYCODONE [Concomitant]
     Active Substance: OXYCODONE
  5. NORCO [Concomitant]
     Active Substance: ACETAMINOPHEN\HYDROCODONE BITARTRATE
  6. COMPAZINE [Concomitant]
     Active Substance: PROCHLORPERAZINE MALEATE
  7. LASIX [Concomitant]
     Active Substance: FUROSEMIDE
  8. LENVIMA [Suspect]
     Active Substance: LENVATINIB
     Indication: THYROID CANCER
     Route: 048
     Dates: start: 20150602, end: 20150904
  9. LIDOCAINE 5% [Concomitant]
     Active Substance: LIDOCAINE
  10. CLOMITRAZOLE/BETAMETHASONE [Concomitant]
  11. ZOFRAN [Concomitant]
     Active Substance: ONDANSETRON HYDROCHLORIDE
  12. LENVIMA [Suspect]
     Active Substance: LENVATINIB
     Route: 048
     Dates: start: 20150912, end: 20151028
  13. LENVIMA [Suspect]
     Active Substance: LENVATINIB
     Route: 048
     Dates: start: 20151029, end: 20151208
  14. CALCIUM [Concomitant]
     Active Substance: CALCIUM
  15. HYDROCORTISONE 2.5% [Concomitant]
  16. HYDROCODONE-ACETAMINOP [Concomitant]
  17. KEFLEX [Concomitant]
     Active Substance: CEPHALEXIN
  18. VITAMIN D [Concomitant]
     Active Substance: CHOLECALCIFEROL
  19. XGEVA [Concomitant]
     Active Substance: DENOSUMAB
  20. NORVASC [Concomitant]
     Active Substance: AMLODIPINE BESYLATE

REACTIONS (12)
  - Neutropenia [Not Recovered/Not Resolved]
  - Blood pressure increased [Recovered/Resolved]
  - Gallbladder pain [Unknown]
  - Burning sensation [Recovered/Resolved]
  - Dry mouth [Unknown]
  - Fatigue [Unknown]
  - Posterior reversible encephalopathy syndrome [Recovering/Resolving]
  - Malignant neoplasm progression [Unknown]
  - Decreased appetite [Unknown]
  - Death [Fatal]
  - Skin exfoliation [Recovered/Resolved]
  - Headache [Unknown]

NARRATIVE: CASE EVENT DATE: 2015
